FAERS Safety Report 16868654 (Version 1)
Quarter: 2019Q3

REPORT INFORMATION
  Report Type: Spontaneous
  Country: US (occurrence: US)
  Receive Date: 20190930
  Receipt Date: 20190930
  Transmission Date: 20191005
  Serious: No
  Sender: FDA-Public Use
  Company Number: US-PFIZER INC-2019419805

PATIENT
  Age: 61 Year
  Sex: Female
  Weight: 61.23 kg

DRUGS (2)
  1. LYRICA [Suspect]
     Active Substance: PREGABALIN
     Indication: NEURALGIA
     Dosage: 150 MG, 2X/DAY (TAKE ONE IN THE MORNING AND ONE AT NIGHT )
  2. LYRICA [Suspect]
     Active Substance: PREGABALIN
     Indication: PAIN IN EXTREMITY

REACTIONS (2)
  - Weight increased [Unknown]
  - Intentional product misuse [Unknown]
